FAERS Safety Report 11680564 (Version 3)
Quarter: 2015Q4

REPORT INFORMATION
  Report Type: Spontaneous
  Country: US (occurrence: US)
  Receive Date: 20151027
  Receipt Date: 20151110
  Transmission Date: 20160304
  Serious: No
  Sender: FDA-Public Use
  Company Number: US-ELI_LILLY_AND_COMPANY-US201010005895

PATIENT
  Age: 57 Year
  Sex: Female

DRUGS (5)
  1. FORTEO [Suspect]
     Active Substance: TERIPARATIDE
     Indication: OSTEOPOROSIS
     Dosage: 20 UG, DAILY (1/D)
     Dates: start: 201008
  2. METHOTREXATE [Concomitant]
     Active Substance: METHOTREXATE
  3. FORTEO [Suspect]
     Active Substance: TERIPARATIDE
     Dosage: 20 UG, QD
  4. HUMIRA [Concomitant]
     Active Substance: ADALIMUMAB
     Indication: RHEUMATOID ARTHRITIS
  5. FORTEO [Suspect]
     Active Substance: TERIPARATIDE
     Dosage: 20 UG, DAILY (1/D)

REACTIONS (16)
  - Hand fracture [Recovering/Resolving]
  - Headache [Unknown]
  - Arthralgia [Unknown]
  - Musculoskeletal pain [Unknown]
  - Fatigue [Recovering/Resolving]
  - Renal disorder [Unknown]
  - Malaise [Unknown]
  - Gait disturbance [Unknown]
  - Neck pain [Unknown]
  - Asthenia [Recovering/Resolving]
  - Decreased activity [Unknown]
  - Road traffic accident [Unknown]
  - Nasopharyngitis [Unknown]
  - Joint injury [Unknown]
  - Anxiety [Unknown]
  - Pain [Unknown]

NARRATIVE: CASE EVENT DATE: 201104
